FAERS Safety Report 13635479 (Version 1)
Quarter: 2017Q2

REPORT INFORMATION
  Report Type: Spontaneous
  Country: US (occurrence: US)
  Receive Date: 20170531
  Receipt Date: 20170531
  Transmission Date: 20170830
  Serious: No
  Sender: FDA-Public Use
  Company Number: US-ASTELLAS-1717344

PATIENT
  Age: 68 Year
  Sex: Male

DRUGS (1)
  1. TARCEVA [Suspect]
     Active Substance: ERLOTINIB HYDROCHLORIDE
     Indication: NEOPLASM MALIGNANT
     Route: 048
     Dates: start: 20160213

REACTIONS (5)
  - Rash [Not Recovered/Not Resolved]
  - Body temperature increased [Recovering/Resolving]
  - Influenza [Unknown]
  - Rash [Unknown]
  - Weight decreased [Unknown]

NARRATIVE: CASE EVENT DATE: 20160331
